FAERS Safety Report 12981067 (Version 1)
Quarter: 2016Q4

REPORT INFORMATION
  Report Type: Spontaneous
  Country: JP (occurrence: JP)
  Receive Date: 20161128
  Receipt Date: 20161128
  Transmission Date: 20170207
  Serious: Yes (Hospitalization, Other)
  Sender: FDA-Public Use
  Company Number: JP-ALEMBIC PHARMACUETICALS LIMITED-2016SCAL000946

PATIENT

DRUGS (6)
  1. MAGNESIUM OXIDE. [Concomitant]
     Active Substance: MAGNESIUM OXIDE
     Indication: PRODUCT USED FOR UNKNOWN INDICATION
     Dosage: UNK
  2. MEMANTINE HYDROCHLORIDE. [Suspect]
     Active Substance: MEMANTINE HYDROCHLORIDE
     Dosage: 5 MG WEEKLY
  3. PRAVASTATIN. [Concomitant]
     Active Substance: PRAVASTATIN
     Indication: PRODUCT USED FOR UNKNOWN INDICATION
     Dosage: UNK
  4. MEMANTINE HYDROCHLORIDE. [Suspect]
     Active Substance: MEMANTINE HYDROCHLORIDE
     Dosage: 15 MG, DOSE INCREASED
  5. MEMANTINE HYDROCHLORIDE. [Suspect]
     Active Substance: MEMANTINE HYDROCHLORIDE
     Indication: DEMENTIA
     Dosage: 5 MG, QD
  6. AMLODIPINE [Concomitant]
     Active Substance: AMLODIPINE BESYLATE
     Indication: PRODUCT USED FOR UNKNOWN INDICATION
     Dosage: UNK

REACTIONS (1)
  - Loss of consciousness [Recovered/Resolved]
